FAERS Safety Report 9290872 (Version 1)
Quarter: 2013Q2

REPORT INFORMATION
  Report Type: Spontaneous
  Country: US (occurrence: US)
  Receive Date: 20130515
  Receipt Date: 20130515
  Transmission Date: 20140414
  Serious: No
  Sender: FDA-Public Use
  Company Number: US-ROXANE LABORATORIES, INC.-2013-RO-00793RO

PATIENT
  Sex: Female

DRUGS (2)
  1. IPRATROPIUM BROMIDE NASAL SOLUTION, 0.06% [Suspect]
     Indication: NASAL CONGESTION
     Route: 045
  2. HERBAL SUPPLEMENTS [Concomitant]

REACTIONS (1)
  - Vision blurred [Not Recovered/Not Resolved]
